FAERS Safety Report 10420862 (Version 2)
Quarter: 2014Q4

REPORT INFORMATION
  Report Type: Spontaneous
  Country: US (occurrence: None)
  Receive Date: 20140714
  Receipt Date: 20141015
  Transmission Date: 20150528
  Serious: Yes (Other)
  Sender: FDA-Public Use
  Company Number: 2014US003241

PATIENT
  Age: 78 Year
  Sex: Male
  Weight: 92 kg

DRUGS (6)
  1. MULTIVITAMIN (MULTIVITAMN) [Concomitant]
  2. CARVEDILOL (CARVEDILOL) [Concomitant]
     Active Substance: CARVEDILOL
  3. RAPAFLO [Concomitant]
     Active Substance: SILODOSIN
  4. VITAMIN D [Concomitant]
     Active Substance: CHOLECALCIFEROL
  5. ASPIRIN (ASPIRIN) [Concomitant]
     Active Substance: ASPIRIN
  6. ICLUSIG [Suspect]
     Active Substance: PONATINIB
     Indication: CHRONIC MYELOID LEUKAEMIA
     Route: 048
     Dates: start: 20120529, end: 20140320

REACTIONS (1)
  - Hypertensive crisis [None]

NARRATIVE: CASE EVENT DATE: 20140320
